FAERS Safety Report 7391451-4 (Version None)
Quarter: 2011Q2

REPORT INFORMATION
  Report Type: 
  Country: None (occurrence: None)
  Receive Date: 20110404
  Receipt Date: 20101025
  Transmission Date: 20111010
  Serious: Yes (Other)
  Sender: FDA-Public Use
  Company Number: US-BAYER-201014312NA

PATIENT
  Sex: Female
  Weight: 54 kg

DRUGS (5)
  1. YAZ [Suspect]
     Indication: ORAL CONTRACEPTION
     Route: 048
     Dates: start: 20070901, end: 20080226
  2. LEXAPRO [Concomitant]
  3. YAZ [Suspect]
     Indication: PREMENSTRUAL SYNDROME
  4. ADVIL [IBUPROFEN] [Concomitant]
  5. PROTONIX [Concomitant]

REACTIONS (4)
  - PULMONARY EMBOLISM [None]
  - FALL [None]
  - HEAD INJURY [None]
  - LOSS OF CONSCIOUSNESS [None]
